FAERS Safety Report 21818429 (Version 1)
Quarter: 2023Q1

REPORT INFORMATION
  Report Type: Spontaneous
  Country: US (occurrence: US)
  Receive Date: 20230104
  Receipt Date: 20230104
  Transmission Date: 20230418
  Serious: Yes (Other)
  Sender: FDA-Public Use
  Company Number: US-COOPERSURGICAL, INC.-US-2022CPS003090

PATIENT
  Age: 21 Year
  Sex: Female
  Weight: 69.388 kg

DRUGS (1)
  1. PARAGARD T 380A [Suspect]
     Active Substance: COPPER
     Indication: Contraception
     Dosage: UNK
     Route: 015
     Dates: start: 20211116, end: 20220712

REACTIONS (8)
  - Device breakage [Not Recovered/Not Resolved]
  - Foreign body in reproductive tract [Not Recovered/Not Resolved]
  - Coital bleeding [Unknown]
  - Device material issue [Unknown]
  - Device expulsion [Recovered/Resolved]
  - Abnormal uterine bleeding [Recovered/Resolved]
  - Pelvic pain [Unknown]
  - Vaginal discharge [Unknown]

NARRATIVE: CASE EVENT DATE: 20211116
